FAERS Safety Report 8376897-X (Version None)
Quarter: 2012Q2

REPORT INFORMATION
  Report Type: 
  Country: None (occurrence: None)
  Receive Date: 20120522
  Receipt Date: 20120517
  Transmission Date: 20120825
  Serious: Yes (Other)
  Sender: FDA-Public Use
  Company Number: PHEH2012US010336

PATIENT
  Sex: Female

DRUGS (4)
  1. TEGRETOL [Suspect]
     Dosage: UNK UKN, UNK
  2. BACLOFEN [Concomitant]
     Dosage: UNK UKN, UNK
  3. TIZANIDINE [Concomitant]
     Dosage: UNK UKN, UNK
  4. ROBINUL [Concomitant]
     Dosage: UNK UKN, UNK

REACTIONS (1)
  - CONVULSION [None]
